FAERS Safety Report 5147161-7 (Version None)
Quarter: 2006Q4

REPORT INFORMATION
  Report Type: 
  Country: None (occurrence: None)
  Receive Date: 20061109
  Receipt Date: 20060807
  Transmission Date: 20070319
  Serious: Yes (Hospitalization)
  Sender: FDA-Public Use
  Company Number: FR-BOEHRINGER INGELHEIM PHARMACEUTICALS, INC.-2006-BP-12808AI

PATIENT
  Age: 44 Year
  Sex: Male

DRUGS (3)
  1. APTIVUS/RITONAVIR CAPSULES [Suspect]
     Indication: ACQUIRED IMMUNODEFICIENCY SYNDROME
     Route: 048
     Dates: start: 20051213, end: 20060523
  2. LAMIVUDINE + ZIDOVUDINE [Suspect]
     Indication: ACQUIRED IMMUNODEFICIENCY SYNDROME
     Route: 048
     Dates: start: 20051116, end: 20060523
  3. ENFUVIRTIDE [Suspect]
     Indication: ACQUIRED IMMUNODEFICIENCY SYNDROME
     Route: 058
     Dates: start: 20051116, end: 20060523

REACTIONS (8)
  - CHRONIC HEPATITIS [None]
  - DRUG TOXICITY [None]
  - FAECES DISCOLOURED [None]
  - HEPATITIS CHOLESTATIC [None]
  - HEPATOSPLENOMEGALY [None]
  - HYPERBILIRUBINAEMIA [None]
  - JAUNDICE [None]
  - PRURITUS [None]
